FAERS Safety Report 7598211-X (Version None)
Quarter: 2011Q3

REPORT INFORMATION
  Report Type: 
  Country: None (occurrence: None)
  Receive Date: 20110708
  Receipt Date: 20110617
  Transmission Date: 20111222
  Serious: No
  Sender: FDA-Public Use
  Company Number: US-B.I. PHARMACEUTICALS,INC./RIDGEFIELD-2011-BP-15946BP

PATIENT
  Age: 81 Year
  Sex: Female

DRUGS (6)
  1. SUPPLEMENTS [Concomitant]
  2. MICARDIS [Suspect]
     Indication: BLOOD PRESSURE
  3. MULTAQ [Suspect]
  4. MEDICATION NOT FURTHER SPECIFIED [Concomitant]
  5. PRADAXA [Suspect]
  6. CARDIZEM [Concomitant]

REACTIONS (3)
  - ABDOMINAL PAIN [None]
  - ABDOMINAL PAIN UPPER [None]
  - DIARRHOEA [None]
